FAERS Safety Report 4811826-4 (Version None)
Quarter: 2005Q4

REPORT INFORMATION
  Report Type: 
  Country: None (occurrence: None)
  Receive Date: 20051028
  Receipt Date: 20020814
  Transmission Date: 20060501
  Serious: No
  Sender: FDA-Public Use
  Company Number: US-GLAXOSMITHKLINE-A0378143A

PATIENT
  Age: 23 Year
  Sex: Female
  Weight: 60.9 kg

DRUGS (4)
  1. ADVAIR DISKUS 100/50 [Suspect]
     Indication: ASTHMA
     Dosage: 1PUFF TWICE PER DAY
     Route: 055
     Dates: start: 20010401
  2. ALBUTEROL [Concomitant]
     Indication: ASTHMA
     Dosage: 1PUFF AS REQUIRED
     Route: 055
  3. SINGULAIR [Concomitant]
     Indication: ASTHMA
     Dosage: 10MG PER DAY
     Route: 048
  4. LORATADINE [Concomitant]
     Dosage: 10MG PER DAY
     Route: 048

REACTIONS (1)
  - APHONIA [None]
